FAERS Safety Report 16787369 (Version 2)
Quarter: 2019Q4

REPORT INFORMATION
  Report Type: Report from Study
  Country: CA (occurrence: CA)
  Receive Date: 20190909
  Receipt Date: 20191008
  Transmission Date: 20200122
  Serious: Yes (Death, Hospitalization)
  Sender: FDA-Public Use
  Company Number: CA-ACTELION-A-NJ2019-193219

PATIENT
  Age: 45 Year
  Sex: Female
  Weight: 58.5 kg

DRUGS (14)
  1. OPSUMIT [Suspect]
     Active Substance: MACITENTAN
     Indication: PULMONARY ARTERIAL HYPERTENSION
     Dosage: 10 MG
     Route: 048
     Dates: start: 20180414
  2. PANTOPRAZOLE [Concomitant]
     Active Substance: PANTOPRAZOLE
     Dosage: 40 MG, BID
  3. LOSARTAN. [Concomitant]
     Active Substance: LOSARTAN
     Dosage: 50 MG
  4. PROVERA G [Concomitant]
  5. URISEC [Concomitant]
  6. FUROSEMIDE. [Concomitant]
     Active Substance: FUROSEMIDE
     Dosage: 40 MG, QAM
  7. JANUVIA [Concomitant]
     Active Substance: SITAGLIPTIN PHOSPHATE
     Dosage: 100 MG, 1 TABLET DAILY
  8. SPIRONOLACTONE. [Concomitant]
     Active Substance: SPIRONOLACTONE
     Dosage: 100 MG, 1 TABLET AM
  9. ADCIRCA [Concomitant]
     Active Substance: TADALAFIL
  10. TOLOXIN [Concomitant]
     Active Substance: DIGOXIN
     Dosage: 0.125 MG, 1 TABLET AM
  11. METFORMIN [Concomitant]
     Active Substance: METFORMIN HYDROCHLORIDE
     Dosage: 850 MG, BID
  12. BISOPROLOL [Concomitant]
     Active Substance: BISOPROLOL
     Dosage: 5 MG
  13. NOVOLIN [Concomitant]
     Active Substance: INSULIN HUMAN
     Dosage: 15 UNITS
  14. SULFATE FERREUX [Concomitant]
     Dosage: 300 MG, BID

REACTIONS (7)
  - Impaired healing [Not Recovered/Not Resolved]
  - Dyspnoea [Unknown]
  - Gait disturbance [Not Recovered/Not Resolved]
  - Hospitalisation [Unknown]
  - Wound [Not Recovered/Not Resolved]
  - Oxygen saturation decreased [Not Recovered/Not Resolved]
  - Death [Fatal]

NARRATIVE: CASE EVENT DATE: 20190823
